FAERS Safety Report 8532561-5 (Version None)
Quarter: 2012Q3

REPORT INFORMATION
  Report Type: 
  Country: None (occurrence: None)
  Receive Date: 20120724
  Receipt Date: 20120719
  Transmission Date: 20120928
  Serious: No
  Sender: FDA-Public Use
  Company Number: US-PFIZER INC-2012175308

PATIENT
  Sex: Female
  Weight: 104 kg

DRUGS (4)
  1. HYDROCHLOROTHIAZIDE [Concomitant]
     Indication: HYPERTENSION
     Dosage: 40 MG, DAILY
  2. INSULIN [Concomitant]
     Indication: DIABETES MELLITUS
     Dosage: 50 IU, DAILY
  3. LYRICA [Suspect]
     Indication: INTERVERTEBRAL DISC PROTRUSION
     Dosage: 75 MG, 3X/DAY
     Dates: start: 20120501
  4. ATENOLOL [Concomitant]
     Indication: HYPERTENSION
     Dosage: 40 MG, DAILY

REACTIONS (2)
  - ALOPECIA [None]
  - WEIGHT INCREASED [None]
